FAERS Safety Report 7885768-4 (Version None)
Quarter: 2011Q4

REPORT INFORMATION
  Report Type: 
  Country: None (occurrence: None)
  Receive Date: 20111102
  Receipt Date: 20110627
  Transmission Date: 20120403
  Serious: No
  Sender: FDA-Public Use
  Company Number: US-AMGEN-USASP2011032917

PATIENT
  Age: 53 Year
  Sex: Male

DRUGS (2)
  1. ENBREL [Suspect]
     Indication: RHEUMATOID ARTHRITIS
     Dosage: 50 MG, QWK
     Route: 058
     Dates: start: 20110528
  2. PREDNISONE [Concomitant]
     Dosage: 1 MG, UNK

REACTIONS (3)
  - TOOTH EXTRACTION [None]
  - TOOTH INFECTION [None]
  - FEAR [None]
